FAERS Safety Report 5458032-0 (Version None)
Quarter: 2007Q3

REPORT INFORMATION
  Report Type: 
  Country: None (occurrence: None)
  Receive Date: 20070919
  Receipt Date: 20070912
  Transmission Date: 20080115
  Serious: Yes (Other)
  Sender: FDA-Public Use
  Company Number: PHBS2007BR14237

PATIENT
  Age: 60 Year
  Sex: Male

DRUGS (1)
  1. CARBAMAZEPINE [Suspect]
     Dosage: 400 MG, UNK
     Route: 048

REACTIONS (3)
  - CARDIAC DISORDER [None]
  - HEPATIC CIRRHOSIS [None]
  - HYPERTENSION [None]
